FAERS Safety Report 9443806 (Version 1)
Quarter: 2013Q3

REPORT INFORMATION
  Report Type: Spontaneous
  Country: US (occurrence: US)
  Receive Date: 20130806
  Receipt Date: 20130806
  Transmission Date: 20140515
  Serious: Yes (Other)
  Sender: FDA-Public Use
  Company Number: US-TEVA-423269USA

PATIENT
  Sex: Male

DRUGS (4)
  1. FOSINOPRIL [Suspect]
  2. DOXAZOSIN [Suspect]
  3. TRAMADOL [Suspect]
  4. METOPROLOL [Suspect]

REACTIONS (2)
  - Impaired gastric emptying [Unknown]
  - Vomiting [Unknown]
